FAERS Safety Report 8307361 (Version 2)
Quarter: 2014Q1

REPORT INFORMATION
  Report Type: Spontaneous
  Country: US (occurrence: US)
  Receive Date: 20111222
  Receipt Date: 20140210
  Transmission Date: 20141002
  Serious: Yes (Hospitalization, Other)
  Sender: FDA-Public Use
  Company Number: US-US-EMD SERONO, INC.-230878J10USA

PATIENT
  Age: 63 Year
  Sex: Male
  Weight: 84 kg

DRUGS (10)
  1. REBIF [Suspect]
     Indication: MULTIPLE SCLEROSIS
     Route: 058
     Dates: start: 20081212, end: 20100101
  2. REBIF [Suspect]
     Route: 058
     Dates: start: 20100218, end: 201003
  3. REBIF [Suspect]
     Route: 058
     Dates: start: 201003, end: 201303
  4. DOXASOZIN [Concomitant]
     Indication: HYPERTENSION
  5. LOVASTATIN [Concomitant]
     Indication: BLOOD CHOLESTEROL INCREASED
     Dates: start: 201001
  6. ZOCOR [Concomitant]
     Indication: BLOOD CHOLESTEROL INCREASED
     Dates: start: 201001
  7. CARBIDOPA AND LEVODOPA [Concomitant]
     Indication: RESTLESS LEGS SYNDROME
  8. CYMBALTA [Concomitant]
     Indication: DEPRESSION
  9. TRAZODONE [Concomitant]
     Indication: INSOMNIA
  10. NASOCORT [Concomitant]
     Indication: SINUSITIS

REACTIONS (13)
  - Aortic dissection [Recovered/Resolved]
  - Aortic valve incompetence [Recovered/Resolved]
  - Pericardial effusion [Recovered/Resolved]
  - Pleural effusion [Recovered/Resolved]
  - Monoplegia [Recovering/Resolving]
  - Staphylococcal infection [Recovered/Resolved]
  - Cystitis [Recovered/Resolved]
  - Pain in extremity [Recovering/Resolving]
  - Blister [Recovered/Resolved]
  - Spinal cord injury [Unknown]
  - Post procedural haemorrhage [Unknown]
  - Pyrexia [Recovered/Resolved]
  - Influenza like illness [Unknown]
